FAERS Safety Report 5114855-9 (Version None)
Quarter: 2006Q3

REPORT INFORMATION
  Report Type: 
  Country: None (occurrence: None)
  Receive Date: 20060921
  Receipt Date: 20060911
  Transmission Date: 20061208
  Serious: Yes (Hospitalization)
  Sender: FDA-Public Use
  Company Number: 2006098303

PATIENT
  Age: 78 Year
  Sex: Male

DRUGS (1)
  1. MINIPRESS [Suspect]
     Indication: BENIGN PROSTATIC HYPERPLASIA
     Dosage: 2.5 MG (2.5 MG, ONCE), ORAL
     Route: 048
     Dates: start: 20060606, end: 20060606

REACTIONS (2)
  - DEPRESSED LEVEL OF CONSCIOUSNESS [None]
  - ORTHOSTATIC HYPOTENSION [None]
